FAERS Safety Report 9112849 (Version 1)
Quarter: 2013Q1

REPORT INFORMATION
  Report Type: Spontaneous
  Country: US (occurrence: US)
  Receive Date: 20130211
  Receipt Date: 20130211
  Transmission Date: 20140127
  Serious: Yes (Hospitalization, Other)
  Sender: FDA-Public Use
  Company Number: US-PFIZER INC-2013051116

PATIENT
  Age: 8 Year
  Sex: Female

DRUGS (7)
  1. ZITHROMAX [Suspect]
     Indication: ATYPICAL PNEUMONIA
     Dosage: 200 MG/5 ML, UNK
     Route: 048
     Dates: start: 20010920
  2. ZITHROMAX [Suspect]
     Dosage: 200 MG/5 ML, UNK
     Route: 048
     Dates: start: 20011211
  3. ZITHROMAX [Suspect]
     Dosage: 200 MG/5 ML, ONE DOSE
     Route: 048
     Dates: start: 20020820, end: 20020821
  4. MOTRIN [Suspect]
     Indication: UPPER RESPIRATORY TRACT INFECTION
     Dosage: UNK
     Dates: start: 200208
  5. MOTRIN [Suspect]
     Indication: HEADACHE
  6. MOTRIN [Suspect]
     Indication: PYREXIA
  7. CEFTIN [Suspect]
     Indication: ATYPICAL PNEUMONIA
     Dosage: UNK
     Dates: start: 20020821

REACTIONS (1)
  - Stevens-Johnson syndrome [Recovering/Resolving]
